FAERS Safety Report 6673830-3 (Version None)
Quarter: 2010Q2

REPORT INFORMATION
  Report Type: 
  Country: None (occurrence: None)
  Receive Date: 20100407
  Receipt Date: 20100324
  Transmission Date: 20101027
  Serious: Yes (Other)
  Sender: FDA-Public Use
  Company Number: AXC-2010-000077

PATIENT
  Sex: Male

DRUGS (3)
  1. PHOTOFRIN (PORFIMER SODIUM) POWDER FOR SOLUTION FOR INJECTION, 75MG [Suspect]
     Indication: NON-SMALL CELL LUNG CANCER STAGE IIIB
     Dosage: 2 MG/KG BODY WEIGHT, SINGLE, INTRAVENOUS
     Route: 042
     Dates: start: 20020430, end: 20020430
  2. GEMZAR [Suspect]
     Indication: NON-SMALL CELL LUNG CANCER STAGE IIIB
  3. CARBOPLATIN [Suspect]
     Indication: NON-SMALL CELL LUNG CANCER STAGE IIIB

REACTIONS (8)
  - BRONCHIAL OBSTRUCTION [None]
  - COLLAPSE OF LUNG [None]
  - MALIGNANT NEOPLASM PROGRESSION [None]
  - MEDIASTINAL MASS [None]
  - NEOPLASM RECURRENCE [None]
  - NON-SMALL CELL LUNG CANCER [None]
  - SUPERIOR VENA CAVAL OCCLUSION [None]
  - TRACHEO-OESOPHAGEAL FISTULA [None]
